FAERS Safety Report 7047163-X (Version None)
Quarter: 2010Q4

REPORT INFORMATION
  Report Type: 
  Country: None (occurrence: None)
  Receive Date: 20101015
  Receipt Date: 20101007
  Transmission Date: 20110411
  Serious: Yes (Death, Hospitalization)
  Sender: FDA-Public Use
  Company Number: BE-ELI_LILLY_AND_COMPANY-BE201002006477

PATIENT
  Sex: Male
  Weight: 83 kg

DRUGS (5)
  1. PEMETREXED [Suspect]
     Indication: NON-SMALL CELL LUNG CANCER
     Dosage: 500 MG/M2 DAY 1 EVERY 21 DAYS
     Route: 042
     Dates: start: 20100215
  2. CISPLATIN [Suspect]
     Indication: NON-SMALL CELL LUNG CANCER
     Dosage: 75 MG/M2 DAY 1 EVERY 21 DAYS
     Route: 042
     Dates: start: 20100215
  3. FOLIC ACID [Concomitant]
     Indication: PROPHYLAXIS
     Dates: start: 20100211
  4. VITAMIN B-12 [Concomitant]
     Indication: PROPHYLAXIS
     Dates: start: 20100211
  5. DEXAMETHASONE [Concomitant]
     Indication: PROPHYLAXIS
     Dates: start: 20100211

REACTIONS (3)
  - ANXIETY [None]
  - DEPRESSION [None]
  - DYSPNOEA [None]
